FAERS Safety Report 12789947 (Version 5)
Quarter: 2017Q4

REPORT INFORMATION
  Report Type: Spontaneous
  Country: US (occurrence: US)
  Receive Date: 20160928
  Receipt Date: 20171127
  Transmission Date: 20180320
  Serious: Yes (Hospitalization)
  Sender: FDA-Public Use
  Company Number: US-LUNDBECK-DKLU2019906

PATIENT
  Age: 60 Year
  Sex: Male

DRUGS (3)
  1. NORTHERA [Suspect]
     Active Substance: DROXIDOPA
     Indication: ORTHOSTATIC HYPOTENSION
     Route: 048
     Dates: start: 20160830, end: 20160923
  2. NORTHERA [Suspect]
     Active Substance: DROXIDOPA
     Indication: AUTONOMIC NEUROPATHY
     Route: 065
  3. NORTHERA [Suspect]
     Active Substance: DROXIDOPA
     Indication: DIZZINESS
     Route: 065
     Dates: start: 20161008

REACTIONS (6)
  - Fall [Recovered/Resolved with Sequelae]
  - Drug dose omission [Recovered/Resolved]
  - Incorrect dose administered [Unknown]
  - Hip fracture [Unknown]
  - Immobile [Unknown]
  - Asthenia [Unknown]

NARRATIVE: CASE EVENT DATE: 20160919
